FAERS Safety Report 7459041-2 (Version None)
Quarter: 2011Q2

REPORT INFORMATION
  Report Type: 
  Country: None (occurrence: None)
  Receive Date: 20110505
  Receipt Date: 20080609
  Transmission Date: 20111010
  Serious: No
  Sender: FDA-Public Use
  Company Number: US-BIOGENIDEC-2008BI015123

PATIENT
  Sex: Female

DRUGS (1)
  1. TYSABRI [Suspect]
     Indication: MULTIPLE SCLEROSIS
     Route: 042
     Dates: start: 20080516

REACTIONS (15)
  - INFLUENZA LIKE ILLNESS [None]
  - BODY TEMPERATURE INCREASED [None]
  - DRUG INEFFECTIVE [None]
  - URINARY TRACT INFECTION [None]
  - NASOPHARYNGITIS [None]
  - SLUGGISHNESS [None]
  - MUSCULAR WEAKNESS [None]
  - NAUSEA [None]
  - FALL [None]
  - SINUSITIS [None]
  - FEELING HOT [None]
  - FATIGUE [None]
  - HEADACHE [None]
  - GAIT DISTURBANCE [None]
  - ARTHRALGIA [None]
